FAERS Safety Report 19953194 (Version 1)
Quarter: 2021Q4

REPORT INFORMATION
  Report Type: Spontaneous
  Country: ES (occurrence: ES)
  Receive Date: 20211013
  Receipt Date: 20211013
  Transmission Date: 20220303
  Serious: Yes (Hospitalization, Other)
  Sender: FDA-Public Use
  Company Number: ES-ALLERGAN-2134551US

PATIENT

DRUGS (2)
  1. PHENYLEPHRINE [Suspect]
     Active Substance: PHENYLEPHRINE HYDROCHLORIDE
     Indication: Mydriasis
     Dosage: 0.5 ML
     Route: 057
  2. ATROPINE [Suspect]
     Active Substance: ATROPINE
     Indication: Bradycardia
     Route: 042

REACTIONS (5)
  - Bradycardia [Recovered/Resolved]
  - Chest pain [Recovered/Resolved]
  - Headache [Recovered/Resolved]
  - Hypertension [Recovered/Resolved]
  - Supraventricular tachycardia [Recovered/Resolved]
